FAERS Safety Report 19410960 (Version 2)
Quarter: 2021Q2

REPORT INFORMATION
  Report Type: Spontaneous
  Country: DE (occurrence: DE)
  Receive Date: 20210614
  Receipt Date: 20210623
  Transmission Date: 20210717
  Serious: Yes (Other)
  Sender: FDA-Public Use
  Company Number: DE-TEVA-2021-DE-1921577

PATIENT
  Age: 65 Year
  Sex: Male

DRUGS (4)
  1. TAMSULOSIN 0.4 MG [Concomitant]
     Active Substance: TAMSULOSIN
     Route: 048
  2. CANDESARTAN 16 MG [Concomitant]
     Active Substance: CANDESARTAN
     Route: 048
  3. METOPROLOL 47.5 MG [Suspect]
     Active Substance: METOPROLOL
     Indication: HYPERTENSION
     Dosage: FOR YEARS
     Route: 048
  4. ALLOPURINOL 100 MG [Concomitant]
     Active Substance: ALLOPURINOL
     Route: 048

REACTIONS (3)
  - Bradycardia [Unknown]
  - Atrioventricular block complete [Unknown]
  - Contraindicated product administered [Unknown]

NARRATIVE: CASE EVENT DATE: 2021
